FAERS Safety Report 5952792-8 (Version None)
Quarter: 2008Q4

REPORT INFORMATION
  Report Type: 
  Country: None (occurrence: None)
  Receive Date: 20081114
  Receipt Date: 20081107
  Transmission Date: 20090506
  Serious: Yes (Other)
  Sender: FDA-Public Use
  Company Number: KR-JNJFOC-20081101962

PATIENT
  Age: 73 Year
  Sex: Female

DRUGS (14)
  1. DURAGESIC-100 [Suspect]
     Indication: ARTHRALGIA
     Route: 062
  2. DURAGESIC-100 [Suspect]
     Indication: MUSCULOSKELETAL PAIN
     Route: 062
  3. LIDOCAINE 2% [Concomitant]
     Dosage: 0.3/INJECTION
     Route: 065
  4. SODIUM CHLORIDE [Concomitant]
     Dosage: 1.0/INJECTION
     Route: 065
  5. TRIAMCINOLONE ACETONIDE [Concomitant]
     Dosage: 1.0/40MG/TABLET
     Route: 065
  6. TRIAMCINOLONE ACETONIDE [Concomitant]
     Dosage: 1.0/40MG/TABLET
     Route: 065
  7. TRIAMCINOLONE ACETONIDE [Concomitant]
     Dosage: 1.0/40MG/TABLET
     Route: 065
  8. DEXAMETHASONE DISODIUM PHOSPHATE [Concomitant]
     Dosage: 1.0/INJECTION
     Route: 065
  9. ISOSORBIDE DINITRATE [Concomitant]
     Dosage: 1.0/40MG/TABLET/ORAL
     Route: 048
  10. ATENOLOL [Concomitant]
     Dosage: 1.0/25MG/TABLET/ORAL
     Route: 048
  11. ASPIRIN [Concomitant]
     Dosage: 1.0/100MG/TABLET/ORAL
     Route: 048
  12. LEVOSULPIRIDE [Concomitant]
     Dosage: 6.0/25MG/TABLET/ORAL
     Route: 048
  13. FUROSEMIDE [Concomitant]
     Route: 065
  14. TRIGGER POINT INJECTIONS [Concomitant]
     Route: 065

REACTIONS (3)
  - CHEST PAIN [None]
  - DYSPNOEA [None]
  - HYPOTENSION [None]
